FAERS Safety Report 10110401 (Version 2)
Quarter: 2014Q2

REPORT INFORMATION
  Report Type: Spontaneous
  Country: US (occurrence: US)
  Receive Date: 20140425
  Receipt Date: 20140527
  Transmission Date: 20141212
  Serious: Yes (Hospitalization)
  Sender: FDA-Public Use
  Company Number: US-SA-2014SA050697

PATIENT
  Age: 10 Year
  Sex: Male
  Weight: 31.2 kg

DRUGS (5)
  1. AUVI-Q [Suspect]
     Indication: MILK ALLERGY
     Route: 065
  2. AUVI-Q [Suspect]
     Indication: FOOD ALLERGY
     Route: 065
  3. PRO-AIR [Concomitant]
  4. CETIRIZINE [Concomitant]
  5. QVAR [Concomitant]
     Dosage: 1-11 WEEKS DOSE:2 UNIT(S)

REACTIONS (3)
  - Anaphylactic reaction [Unknown]
  - Hypersensitivity [Recovered/Resolved]
  - Drug ineffective [Unknown]
